FAERS Safety Report 6535658-4 (Version None)
Quarter: 2010Q1

REPORT INFORMATION
  Report Type: 
  Country: None (occurrence: None)
  Receive Date: 20100111
  Receipt Date: 20100111
  Transmission Date: 20100710
  Serious: No
  Sender: FDA-Public Use
  Company Number: None

PATIENT
  Age: 15 Day
  Sex: Female
  Weight: 65.7716 kg

DRUGS (1)
  1. ZICAM COLD REMEDY NASAL GEL 0.50 FL.OZ.15 MI MATRIXX INITIATIVES INC. [Suspect]
     Indication: DYSPNOEA
     Dosage: 1 SPRAY 1 TIME NASAL
     Route: 045
     Dates: start: 20091226, end: 20091226

REACTIONS (7)
  - AGEUSIA [None]
  - ANOSMIA [None]
  - EYE PAIN [None]
  - FEAR [None]
  - HEADACHE [None]
  - NERVOUS SYSTEM DISORDER [None]
  - RHINORRHOEA [None]
